FAERS Safety Report 12351842 (Version 3)
Quarter: 2016Q2

REPORT INFORMATION
  Report Type: Spontaneous
  Country: US (occurrence: TH)
  Receive Date: 20160510
  Receipt Date: 20160607
  Transmission Date: 20160815
  Serious: Yes (Other)
  Sender: FDA-Public Use
  Company Number: TH-JNJFOC-20150919765

PATIENT
  Sex: Male
  Weight: 86.18 kg

DRUGS (2)
  1. ZOLOFT [Suspect]
     Active Substance: SERTRALINE HYDROCHLORIDE
     Indication: PRODUCT USED FOR UNKNOWN INDICATION
     Route: 065
  2. RISPERDAL [Suspect]
     Active Substance: RISPERIDONE
     Indication: PRODUCT USED FOR UNKNOWN INDICATION
     Route: 048
     Dates: start: 200502, end: 200509

REACTIONS (12)
  - Underdose [Unknown]
  - Psychotic disorder [Unknown]
  - Injury [Recovered/Resolved]
  - Wrong technique in product usage process [Unknown]
  - Drug prescribing error [Unknown]
  - Drug withdrawal syndrome [Unknown]
  - Personal relationship issue [Unknown]
  - Off label use [Unknown]
  - Affect lability [Unknown]
  - Product shape issue [Unknown]
  - Adverse event [Unknown]
  - Victim of abuse [Unknown]

NARRATIVE: CASE EVENT DATE: 2005
